FAERS Safety Report 25953248 (Version 1)
Quarter: 2025Q4

REPORT INFORMATION
  Report Type: Spontaneous
  Country: US (occurrence: US)
  Receive Date: 20251023
  Receipt Date: 20251023
  Transmission Date: 20260117
  Serious: Yes (Other)
  Sender: SANOFI AVENTIS
  Company Number: US-DialogSolutions-SAAVPROD-PI832924-C1

PATIENT
  Age: 3 Year
  Sex: Male

DRUGS (36)
  1. CAMPATH [Suspect]
     Active Substance: ALEMTUZUMAB
     Indication: Lymphodepletion
     Dosage: 0.1 MG/KG, QD
     Route: 058
  2. PROGRAF [Suspect]
     Active Substance: TACROLIMUS
     Indication: Liver transplant
     Dosage: 0.6 MG, BID (0.1 MG/KG)
  3. PROGRAF [Suspect]
     Active Substance: TACROLIMUS
     Dosage: 1.5 MG, BID
  4. PROGRAF [Suspect]
     Active Substance: TACROLIMUS
     Dosage: 1.5 MG, BID
  5. PROGRAF [Suspect]
     Active Substance: TACROLIMUS
     Dosage: 0.5 MG, BID
  6. PROGRAF [Suspect]
     Active Substance: TACROLIMUS
     Dosage: 0.5 MG, QD
  7. PROGRAF [Suspect]
     Active Substance: TACROLIMUS
     Dosage: 0.5 MG, QD
  8. PROGRAF [Suspect]
     Active Substance: TACROLIMUS
     Dosage: 0.2 MG, QD
  9. PROGRAF [Suspect]
     Active Substance: TACROLIMUS
     Dosage: 0.7 MG, QD
  10. PROGRAF [Suspect]
     Active Substance: TACROLIMUS
     Dosage: 0.5 MG, QD
  11. PROGRAF [Suspect]
     Active Substance: TACROLIMUS
     Dosage: 0.5 MG, QD
  12. PROGRAF [Suspect]
     Active Substance: TACROLIMUS
     Dosage: 0.2 MG, BID
  13. PROGRAF [Suspect]
     Active Substance: TACROLIMUS
     Dosage: 0.2 MG, QD
  14. JAKAFI [Suspect]
     Active Substance: RUXOLITINIB
     Indication: Liver transplant
     Dosage: 1.25 MG, BID
  15. JAKAFI [Suspect]
     Active Substance: RUXOLITINIB
     Dosage: 1.25 MG, BID
  16. JAKAFI [Suspect]
     Active Substance: RUXOLITINIB
     Dosage: 1.25 MG, BID
  17. JAKAFI [Suspect]
     Active Substance: RUXOLITINIB
     Dosage: 1.25 MG, BID
  18. JAKAFI [Suspect]
     Active Substance: RUXOLITINIB
     Dosage: 1.25 MG, TID
  19. JAKAFI [Suspect]
     Active Substance: RUXOLITINIB
     Dosage: 1.25 MG, TID
  20. JAKAFI [Suspect]
     Active Substance: RUXOLITINIB
     Dosage: 1.25 MG, TID
  21. JAKAFI [Suspect]
     Active Substance: RUXOLITINIB
     Dosage: 1.25 MG, TID
  22. METHYLPREDNISOLONE [Suspect]
     Active Substance: METHYLPREDNISOLONE
     Indication: Liver transplant
     Dosage: UNK
  23. METHYLPREDNISOLONE [Suspect]
     Active Substance: METHYLPREDNISOLONE
     Dosage: GRADUALLY WEANED
  24. FLUCONAZOLE [Concomitant]
     Active Substance: FLUCONAZOLE
     Indication: Antifungal prophylaxis
     Dosage: UNK
  25. POSACONAZOLE [Concomitant]
     Active Substance: POSACONAZOLE
     Indication: Antifungal prophylaxis
     Dosage: 6 MG/KG, BID LOADING DOSAGE
     Route: 042
  26. POSACONAZOLE [Concomitant]
     Active Substance: POSACONAZOLE
     Dosage: 6 MG/KG, BID LOADING DOSAGE
     Route: 042
  27. POSACONAZOLE [Concomitant]
     Active Substance: POSACONAZOLE
     Dosage: SWITCHED TO ENTERIC ADMINISTRATION 53 DAYS POST-LT
  28. POSACONAZOLE [Concomitant]
     Active Substance: POSACONAZOLE
     Dosage: 40 MG, BID
  29. POSACONAZOLE [Concomitant]
     Active Substance: POSACONAZOLE
     Dosage: 40 MG, QD
  30. POSACONAZOLE [Concomitant]
     Active Substance: POSACONAZOLE
     Dosage: 60 MG, QD
  31. POSACONAZOLE [Concomitant]
     Active Substance: POSACONAZOLE
     Dosage: 60 MG, QD
  32. POSACONAZOLE [Concomitant]
     Active Substance: POSACONAZOLE
     Dosage: 50 MG, QD
  33. POSACONAZOLE [Concomitant]
     Active Substance: POSACONAZOLE
     Dosage: 50 MG, QD
  34. POSACONAZOLE [Concomitant]
     Active Substance: POSACONAZOLE
     Dosage: 64 MG, TID
  35. POSACONAZOLE [Concomitant]
     Active Substance: POSACONAZOLE
     Dosage: 80 MG, TID
  36. POSACONAZOLE [Concomitant]
     Active Substance: POSACONAZOLE
     Dosage: 80 MG, TID

REACTIONS (9)
  - Enterocolitis [Recovered/Resolved]
  - Malabsorption [Recovered/Resolved]
  - Norovirus infection [Recovered/Resolved]
  - Growth retardation [Recovered/Resolved]
  - Off label use [Unknown]
  - Pancytopenia [Recovered/Resolved]
  - Thrombocytopenia [Recovered/Resolved]
  - Anaemia [Recovered/Resolved]
  - Epstein-Barr virus infection [Unknown]
